FAERS Safety Report 8033023-4 (Version None)
Quarter: 2012Q1

REPORT INFORMATION
  Report Type: 
  Country: None (occurrence: None)
  Receive Date: 20120110
  Receipt Date: 20120103
  Transmission Date: 20120608
  Serious: Yes (Hospitalization)
  Sender: FDA-Public Use
  Company Number: US-BAYER-2011-034695

PATIENT
  Age: 31 Year
  Sex: Female
  Weight: 73.923 kg

DRUGS (7)
  1. ZOLPIDEM TARTRATE [Concomitant]
     Dosage: UNK
     Dates: start: 20080101, end: 20090501
  2. CONCERTA [Concomitant]
     Dosage: UNK UNK, QD
  3. AMPHETAMINE AND DEXTROAMPHETAMINE SALTS [Concomitant]
     Dosage: UNK
     Dates: start: 20070101
  4. YAZ [Suspect]
     Indication: CONTRACEPTION
     Dosage: UNK
     Dates: start: 20081101, end: 20090201
  5. PAROXETINE [Concomitant]
     Dosage: UNK
     Dates: start: 20080701, end: 20090101
  6. YAZ [Suspect]
     Indication: ACNE
  7. ADDERALL 5 [Concomitant]
     Dosage: 20 MG, QD
     Route: 048

REACTIONS (8)
  - GALLBLADDER ENLARGEMENT [None]
  - GALLBLADDER OEDEMA [None]
  - CHOLECYSTITIS ACUTE [None]
  - NAUSEA [None]
  - PAIN [None]
  - ABDOMINAL PAIN UPPER [None]
  - VOMITING [None]
  - ABDOMINAL ADHESIONS [None]
